FAERS Safety Report 18918154 (Version 1)
Quarter: 2021Q1

REPORT INFORMATION
  Report Type: Spontaneous
  Country: IT (occurrence: IT)
  Receive Date: 20210220
  Receipt Date: 20210220
  Transmission Date: 20210420
  Serious: Yes (Other)
  Sender: FDA-Public Use
  Company Number: IT-ABBVIE-21K-083-3778311-00

PATIENT
  Age: 40 Year
  Sex: Female
  Weight: 57 kg

DRUGS (2)
  1. PURINETHOL [Concomitant]
     Active Substance: MERCAPTOPURINE
     Indication: CROHN^S DISEASE
     Route: 048
     Dates: start: 20180301, end: 20200912
  2. HUMIRA [Suspect]
     Active Substance: ADALIMUMAB
     Indication: CROHN^S DISEASE
     Route: 058
     Dates: start: 20130201, end: 20200912

REACTIONS (3)
  - Frequent bowel movements [Recovering/Resolving]
  - Crohn^s disease [Recovering/Resolving]
  - Therapeutic product effect decreased [Recovering/Resolving]

NARRATIVE: CASE EVENT DATE: 20201029
